FAERS Safety Report 22050591 (Version 2)
Quarter: 2023Q1

REPORT INFORMATION
  Report Type: Spontaneous
  Country: US (occurrence: None)
  Receive Date: 20230301
  Receipt Date: 20230324
  Transmission Date: 20230418
  Serious: Yes (Other)
  Sender: FDA-Public Use
  Company Number: 2023A044765

PATIENT
  Age: 37 Year
  Sex: Male
  Weight: 131.1 kg

DRUGS (2)
  1. FARXIGA [Suspect]
     Active Substance: DAPAGLIFLOZIN PROPANEDIOL
     Indication: Type 2 diabetes mellitus
     Dosage: 10.0MG UNKNOWN
     Route: 048
     Dates: start: 20230207, end: 20230220
  2. METFORMIN [Concomitant]
     Active Substance: METFORMIN HYDROCHLORIDE
     Indication: Diabetes mellitus
     Dosage: 500.0MG UNKNOWN

REACTIONS (3)
  - Pancreatitis [Recovered/Resolved]
  - Resuscitation [Unknown]
  - Pain [Unknown]

NARRATIVE: CASE EVENT DATE: 20230219
